FAERS Safety Report 8216009-6 (Version None)
Quarter: 2012Q1

REPORT INFORMATION
  Report Type: 
  Country: None (occurrence: None)
  Receive Date: 20120316
  Receipt Date: 20120309
  Transmission Date: 20120608
  Serious: Yes (Hospitalization)
  Sender: FDA-Public Use
  Company Number: FR-UCBSA-053076

PATIENT
  Age: 98 Year
  Sex: Female

DRUGS (11)
  1. OMEPRAZOLE [Concomitant]
  2. ZOPICLONE [Concomitant]
  3. MEMANTINE HYDROCHLORIDE [Concomitant]
  4. CALCIUM CARBONATE [Concomitant]
  5. ATHYMIL [Concomitant]
  6. POLYETHYLENE GLYCOL [Concomitant]
  7. FOSAMAX [Concomitant]
  8. KEPPRA [Suspect]
     Route: 048
     Dates: start: 20110108, end: 20111208
  9. ADANCOR [Concomitant]
  10. GALANTAMINE HYDROBROMIDE [Concomitant]
  11. KEPPRA [Suspect]
     Indication: EPILEPSY
     Route: 048
     Dates: start: 20111209, end: 20111212

REACTIONS (3)
  - CYTOLYTIC HEPATITIS [None]
  - EPILEPSY [None]
  - CHOLESTASIS [None]
